FAERS Safety Report 8743195 (Version 2)
Quarter: 2013Q1

REPORT INFORMATION
  Report Type: Spontaneous
  Country: IT (occurrence: IT)
  Receive Date: 20120824
  Receipt Date: 20130305
  Transmission Date: 20140127
  Serious: Yes (Hospitalization)
  Sender: FDA-Public Use
  Company Number: IT-ABBOTT-12P-083-0970639-00

PATIENT
  Age: 33 Year
  Sex: Male

DRUGS (7)
  1. DEPAKIN [Suspect]
     Indication: DRUG ABUSE
     Route: 065
     Dates: start: 20120713, end: 20120713
  2. OLANZAPINE [Suspect]
     Indication: DRUG ABUSE
     Route: 065
     Dates: start: 20120713, end: 20120713
  3. ANAFRANIL [Suspect]
     Indication: DRUG ABUSE
     Route: 065
     Dates: start: 20120713, end: 20120713
  4. HALDOL [Suspect]
     Indication: DRUG ABUSE
     Route: 065
     Dates: start: 20120713, end: 20120713
  5. LANTANON [Suspect]
     Indication: DRUG ABUSE
     Route: 065
     Dates: start: 20120713, end: 20120713
  6. RIVOTRIL [Suspect]
     Indication: DRUG ABUSE
     Route: 065
     Dates: start: 20120713, end: 20120713
  7. TRITTICO [Suspect]
     Indication: DRUG ABUSE
     Route: 065
     Dates: start: 20120713, end: 20120713

REACTIONS (5)
  - Snoring [Recovering/Resolving]
  - Dysarthria [Recovering/Resolving]
  - Tachycardia [Recovering/Resolving]
  - Sopor [Recovering/Resolving]
  - Drug abuse [Unknown]
